FAERS Safety Report 7362641-1 (Version None)
Quarter: 2011Q1

REPORT INFORMATION
  Report Type: 
  Country: None (occurrence: None)
  Receive Date: 20110320
  Receipt Date: 20110316
  Transmission Date: 20110831
  Serious: Yes (Death)
  Sender: FDA-Public Use
  Company Number: FR-SANOFI-AVENTIS-A02200800312

PATIENT
  Age: 73 Year
  Sex: Female
  Weight: 78 kg

DRUGS (7)
  1. COAPROVEL [Suspect]
     Route: 048
     Dates: start: 20070101
  2. PLAVIX [Suspect]
     Dosage: UNIT DOSE: 75 MG
     Route: 048
     Dates: start: 20040101
  3. PLAVIX [Suspect]
     Dosage: UNIT DOSE: 75 MG
     Route: 048
     Dates: start: 20040101
  4. INSULIN [Suspect]
     Route: 058
     Dates: start: 19940101
  5. ALDACTONE [Suspect]
     Route: 048
     Dates: start: 20070101
  6. ATENOLOL [Suspect]
     Route: 048
     Dates: start: 20040101
  7. PIOGLITAZONE [Suspect]
     Dosage: UNIT DOSE: 15 MG
     Route: 048
     Dates: start: 20070827

REACTIONS (5)
  - OEDEMA PERIPHERAL [None]
  - DYSPNOEA [None]
  - WEIGHT INCREASED [None]
  - SUDDEN DEATH [None]
  - CARDIAC FAILURE [None]
